FAERS Safety Report 11028402 (Version 2)
Quarter: 2015Q2

REPORT INFORMATION
  Report Type: Spontaneous
  Country: US (occurrence: US)
  Receive Date: 20150414
  Receipt Date: 20150525
  Transmission Date: 20150821
  Serious: No
  Sender: FDA-Public Use
  Company Number: US-JNJFOC-20130602240

PATIENT
  Sex: Female
  Weight: 84.82 kg

DRUGS (2)
  1. ORTHO TRI CYCLEN LO [Suspect]
     Active Substance: ETHINYL ESTRADIOL\NORGESTIMATE
     Indication: CONTRACEPTION
     Route: 048
     Dates: start: 2012
  2. VITAMIN [Concomitant]
     Active Substance: VITAMINS
     Route: 065

REACTIONS (11)
  - Weight decreased [Not Recovered/Not Resolved]
  - Nervousness [Not Recovered/Not Resolved]
  - Starvation [Not Recovered/Not Resolved]
  - Fear [Not Recovered/Not Resolved]
  - Anaemia [Unknown]
  - Menstruation delayed [Not Recovered/Not Resolved]
  - Sexually transmitted disease [Recovered/Resolved]
  - Metrorrhagia [Not Recovered/Not Resolved]
  - Blister [Recovered/Resolved]
  - Polymenorrhoea [Not Recovered/Not Resolved]
  - Constipation [Not Recovered/Not Resolved]

NARRATIVE: CASE EVENT DATE: 2013
